FAERS Safety Report 11519657 (Version 2)
Quarter: 2016Q4

REPORT INFORMATION
  Report Type: Spontaneous
  Country: FR (occurrence: FR)
  Receive Date: 20150918
  Receipt Date: 20161124
  Transmission Date: 20170206
  Serious: Yes (Hospitalization)
  Sender: FDA-Public Use
  Company Number: FR-ASTRAZENECA-2015SE88770

PATIENT
  Age: 16736 Day
  Sex: Female

DRUGS (4)
  1. ATACAND [Suspect]
     Active Substance: CANDESARTAN CILEXETIL
     Indication: HYPERTENSION
     Route: 048
     Dates: start: 20140120, end: 20140128
  2. UN-ALFA [Suspect]
     Active Substance: ALFACALCIDOL
     Route: 048
     Dates: start: 201311, end: 20140128
  3. UN-ALFA [Suspect]
     Active Substance: ALFACALCIDOL
     Route: 048
     Dates: start: 20130204
  4. LEVOTHYROX [Concomitant]
     Active Substance: LEVOTHYROXINE

REACTIONS (6)
  - Hypertension [Unknown]
  - Asthenia [Recovered/Resolved]
  - Hypercalcaemia [Recovered/Resolved]
  - Acute kidney injury [Recovered/Resolved]
  - Muscle spasms [Recovered/Resolved]
  - Drug ineffective [Unknown]

NARRATIVE: CASE EVENT DATE: 20140128
